FAERS Safety Report 4766587-4 (Version None)
Quarter: 2005Q3

REPORT INFORMATION
  Report Type: 
  Country: None (occurrence: None)
  Receive Date: 20050908
  Receipt Date: 20050826
  Transmission Date: 20060218
  Serious: Yes (Hospitalization, Other)
  Sender: FDA-Public Use
  Company Number: 2005-BP-15014RO

PATIENT
  Age: 56 Year
  Sex: Male

DRUGS (14)
  1. DEXAMETHASONE [Suspect]
     Indication: MULTIPLE MYELOMA
     Dosage: 40 MG/DAY X4/CYCLE X1, PO
     Route: 048
     Dates: start: 20011202
  2. GENASENSE [Suspect]
     Indication: MULTIPLE MYELOMA
     Dosage: 420 MG/DAY X 7/CYCLE X1, IV
     Route: 042
     Dates: start: 20011129
  3. LISINOPRIL [Concomitant]
  4. FUROSEMIDE [Concomitant]
  5. SPIRONOLACTONE [Concomitant]
  6. CARVEDILOL [Concomitant]
  7. METOCLOPRAMIDE [Concomitant]
  8. PROCHLORPERAZINE MALEATE [Concomitant]
  9. LANSOPRAZOLE [Concomitant]
  10. BACTRIM [Concomitant]
  11. HYDROMORPHONE HCL [Concomitant]
  12. FAMOTIDINE [Concomitant]
  13. ZOLPIDEM TARTRATE [Concomitant]
  14. DOCUSATE SODIUM (DOCUSATE SODIUM) [Concomitant]

REACTIONS (21)
  - ABDOMINAL PAIN [None]
  - ANAEMIA [None]
  - BLOOD PRESSURE INCREASED [None]
  - BREATH SOUNDS ABNORMAL [None]
  - CHEST PAIN [None]
  - CONSTIPATION [None]
  - DEHYDRATION [None]
  - DISEASE RECURRENCE [None]
  - DYSPHAGIA [None]
  - HYPOVOLAEMIA [None]
  - MUCOSAL DRYNESS [None]
  - MUCOUS MEMBRANE DISORDER [None]
  - NAUSEA [None]
  - OESOPHAGEAL CANDIDIASIS [None]
  - OROPHARYNGEAL CANDIDIASIS [None]
  - PAIN [None]
  - PHARYNGOLARYNGEAL PAIN [None]
  - RADIATION OESOPHAGITIS [None]
  - RENAL IMPAIRMENT [None]
  - RENAL TUBULAR NECROSIS [None]
  - RESPIRATORY RATE INCREASED [None]
